FAERS Safety Report 4487759-2 (Version None)
Quarter: 2004Q4

REPORT INFORMATION
  Report Type: 
  Country: None (occurrence: None)
  Receive Date: 20041028
  Receipt Date: 20041020
  Transmission Date: 20050328
  Serious: Yes (Hospitalization)
  Sender: FDA-Public Use
  Company Number: 200413971FR

PATIENT
  Age: 76 Year
  Sex: Male
  Weight: 89 kg

DRUGS (6)
  1. LASILIX 40 MG [Suspect]
     Route: 048
     Dates: end: 20040101
  2. FUROSEMIDE [Suspect]
     Route: 048
     Dates: start: 20040101, end: 20040830
  3. BOROCLARINE [Suspect]
     Indication: EYE IRRITATION
     Route: 031
     Dates: start: 20040820, end: 20040822
  4. KALEORID [Suspect]
     Route: 048
     Dates: end: 20040907
  5. DI-ANTALVIC [Concomitant]
     Route: 048
  6. DILRENE [Concomitant]

REACTIONS (3)
  - ALANINE AMINOTRANSFERASE INCREASED [None]
  - BLOOD ALKALINE PHOSPHATASE INCREASED [None]
  - DRUG RASH WITH EOSINOPHILIA AND SYSTEMIC SYMPTOMS [None]
